FAERS Safety Report 17048395 (Version 1)
Quarter: 2019Q4

REPORT INFORMATION
  Report Type: Report from Study
  Country: ES (occurrence: ES)
  Receive Date: 20191119
  Receipt Date: 20191119
  Transmission Date: 20200122
  Serious: Yes (Other)
  Sender: FDA-Public Use
  Company Number: ES-MYLANLABS-2019M1109399

PATIENT
  Age: 52 Year
  Sex: Male

DRUGS (3)
  1. AMOXICILINA + ACIDO CLAVULANICO [Suspect]
     Active Substance: AMOXICILLIN\CLAVULANIC ACID
     Indication: PRODUCT USED FOR UNKNOWN INDICATION
     Dosage: 1 GRAM, Q8H, EVERY EIGHT HOUR (1GR CADA 8 HORAS)
     Route: 042
     Dates: start: 20190308, end: 20190312
  2. LINEZOLID. [Suspect]
     Active Substance: LINEZOLID
     Indication: PRODUCT USED FOR UNKNOWN INDICATION
     Dosage: 600 MILLIGRAM, EVERY 12 HOURS (600 MG CADA 12HORAS)
     Route: 042
     Dates: start: 20190308, end: 20190312
  3. CEFTRIAXONA                        /00672201/ [Suspect]
     Active Substance: CEFTRIAXONE
     Indication: PRODUCT USED FOR UNKNOWN INDICATION
     Dosage: 2 GRAM, QD (2 GR DIA)
     Route: 042
     Dates: start: 20190308, end: 20190312

REACTIONS (1)
  - Hepatitis acute [Recovered/Resolved]

NARRATIVE: CASE EVENT DATE: 20190308
